FAERS Safety Report 7311720-3 (Version None)
Quarter: 2011Q1

REPORT INFORMATION
  Report Type: 
  Country: None (occurrence: None)
  Receive Date: 20110215
  Receipt Date: 20110215
  Transmission Date: 20110831
  Serious: Yes (Other)
  Sender: FDA-Public Use
  Company Number: None

PATIENT
  Age: 66 Year
  Sex: Female

DRUGS (2)
  1. TRILIPIX [Suspect]
  2. TRILIPIX [Suspect]
     Indication: BLOOD TRIGLYCERIDES INCREASED
     Dosage: 135 MG 1 DAILY
     Dates: start: 20100927, end: 20101228

REACTIONS (4)
  - FATIGUE [None]
  - ALOPECIA [None]
  - MENTAL DISORDER [None]
  - DYSPEPSIA [None]
